FAERS Safety Report 25349709 (Version 1)
Quarter: 2025Q2

REPORT INFORMATION
  Report Type: Report from Study
  Country: US (occurrence: US)
  Receive Date: 20250523
  Receipt Date: 20250523
  Transmission Date: 20250716
  Serious: Yes (Other)
  Sender: ABBVIE
  Company Number: US-ABBVIE-6293532

PATIENT
  Sex: Male

DRUGS (1)
  1. SKYRIZI [Suspect]
     Active Substance: RISANKIZUMAB-RZAA
     Indication: Crohn^s disease
     Dosage: ADMINISTER 360 MG (1 CARTRIDGE) USING ON-BODY INJECTOR SUBCUTANEOUSLY EVERY 8 WEEKS
     Route: 058
     Dates: start: 202411

REACTIONS (1)
  - Surgery [Unknown]
